FAERS Safety Report 9291295 (Version 1)
Quarter: 2013Q2

REPORT INFORMATION
  Report Type: Spontaneous
  Country: GB (occurrence: None)
  Receive Date: 20130513
  Receipt Date: 20130513
  Transmission Date: 20140414
  Serious: Yes (Other)
  Sender: FDA-Public Use
  Company Number: 2013P1005384

PATIENT
  Age: 45 Year
  Sex: Female

DRUGS (1)
  1. HEPARIN [Suspect]
     Indication: CAROTID ARTERY DISSECTION
     Route: 042

REACTIONS (3)
  - Heparin-induced thrombocytopenia [None]
  - Cerebellar infarction [None]
  - Hemianopia homonymous [None]
